FAERS Safety Report 9449924 (Version 6)
Quarter: 2013Q4

REPORT INFORMATION
  Report Type: Report from Study
  Country: GB (occurrence: GB)
  Receive Date: 20130809
  Receipt Date: 20131211
  Transmission Date: 20140711
  Serious: Yes (Death, Life-Threatening, Hospitalization)
  Sender: FDA-Public Use
  Company Number: GB-SANOFI-AVENTIS-2013SA076287

PATIENT
  Age: 61 Year
  Sex: Male

DRUGS (20)
  1. AFLIBERCEPT [Suspect]
     Indication: COLORECTAL CANCER METASTATIC
     Route: 041
     Dates: start: 20130124, end: 20130124
  2. AFLIBERCEPT [Suspect]
     Indication: COLORECTAL CANCER METASTATIC
     Route: 041
     Dates: start: 20130717, end: 20130717
  3. 5-FU [Suspect]
     Indication: COLORECTAL CANCER METASTATIC
     Route: 041
     Dates: start: 20130124, end: 20130124
  4. 5-FU [Suspect]
     Indication: COLORECTAL CANCER METASTATIC
     Route: 040
     Dates: start: 20130124, end: 20130124
  5. 5-FU [Suspect]
     Indication: COLORECTAL CANCER METASTATIC
     Route: 041
     Dates: start: 20130717, end: 20130717
  6. 5-FU [Suspect]
     Indication: COLORECTAL CANCER METASTATIC
     Route: 040
     Dates: start: 20130717, end: 20130717
  7. IRINOTECAN [Suspect]
     Indication: COLORECTAL CANCER METASTATIC
     Route: 041
     Dates: start: 20130124, end: 20130124
  8. IRINOTECAN [Suspect]
     Indication: COLORECTAL CANCER METASTATIC
     Route: 041
     Dates: start: 20130717, end: 20130717
  9. LEUCOVORIN [Suspect]
     Indication: COLORECTAL CANCER METASTATIC
     Route: 041
     Dates: start: 20130124, end: 20130124
  10. LEUCOVORIN [Suspect]
     Indication: COLORECTAL CANCER METASTATIC
     Route: 041
     Dates: start: 20130717, end: 20130717
  11. ANTISPASMODICS/ ANTICHOLINERGICS [Concomitant]
     Dates: start: 20130205
  12. SIMPLE LINCTUS [Concomitant]
     Dates: start: 20130205
  13. TAMSULOSIN [Concomitant]
  14. CORTICOSTEROIDS [Concomitant]
  15. DIFFLAM [Concomitant]
     Dates: start: 20130219
  16. PROCTOSEDYL [Concomitant]
     Dates: start: 20130403
  17. ANALGESICS [Concomitant]
     Dates: start: 20130724, end: 20130801
  18. ANALGESICS [Concomitant]
     Dates: start: 20130624, end: 20130726
  19. ANALGESICS [Concomitant]
     Dates: start: 20130725, end: 20130728
  20. ANALGESICS [Concomitant]
     Dates: start: 20130716, end: 20130801

REACTIONS (2)
  - Neutropenic sepsis [Fatal]
  - Pelvic fluid collection [Not Recovered/Not Resolved]
